FAERS Safety Report 23137396 (Version 1)
Quarter: 2023Q4

REPORT INFORMATION
  Report Type: Spontaneous
  Country: US (occurrence: US)
  Receive Date: 20231102
  Receipt Date: 20231102
  Transmission Date: 20240110
  Serious: Yes (Other)
  Sender: FDA-Public Use
  Company Number: US-PURDUE PHARMA-USA-2023-0302512

PATIENT

DRUGS (1)
  1. OXYCONTIN [Suspect]
     Active Substance: OXYCODONE HYDROCHLORIDE
     Indication: Surgery
     Dosage: UNK
     Route: 048

REACTIONS (6)
  - Suicide attempt [Unknown]
  - Drug dependence [Unknown]
  - Drug abuse [Unknown]
  - General physical health deterioration [Unknown]
  - Mental disorder [Unknown]
  - Injury [Unknown]

NARRATIVE: CASE EVENT DATE: 20090307
